FAERS Safety Report 7560810-9 (Version None)
Quarter: 2011Q2

REPORT INFORMATION
  Report Type: 
  Country: None (occurrence: None)
  Receive Date: 20110621
  Receipt Date: 20110614
  Transmission Date: 20111010
  Serious: Yes (Death, Hospitalization)
  Sender: FDA-Public Use
  Company Number: DE-SANOFI-AVENTIS-2011SA038481

PATIENT
  Age: 76 Year
  Sex: Male

DRUGS (9)
  1. METOPROLOL SUCCINATE [Concomitant]
     Indication: ATRIAL FIBRILLATION
     Route: 048
     Dates: start: 20100101, end: 20110428
  2. TORSEMIDE [Concomitant]
     Indication: ATRIAL FIBRILLATION
     Route: 048
     Dates: start: 20100101, end: 20110428
  3. PANTOPRAZOLE SODIUM [Concomitant]
     Indication: PROPHYLAXIS
     Route: 048
     Dates: start: 20100101, end: 20110428
  4. TAXOTERE [Suspect]
     Indication: PROSTATE CANCER METASTATIC
     Route: 041
     Dates: start: 20110401, end: 20110401
  5. PHENPROCOUMON [Concomitant]
     Indication: ATRIAL FIBRILLATION
     Route: 065
     Dates: start: 20100101, end: 20110428
  6. CANDESARTAN CILEXETIL [Concomitant]
     Indication: ATRIAL FIBRILLATION
     Route: 048
     Dates: start: 20100101, end: 20110428
  7. PREDNISONE [Suspect]
     Route: 065
  8. AMLODIPINE [Concomitant]
     Indication: ATRIAL FIBRILLATION
     Route: 065
     Dates: start: 20100101, end: 20110428
  9. PREDNISONE [Concomitant]
     Indication: PROSTATE CANCER
     Route: 048
     Dates: start: 20110101

REACTIONS (3)
  - DEHYDRATION [None]
  - STAPHYLOCOCCAL SEPSIS [None]
  - LEUKOPENIA [None]
